FAERS Safety Report 8136359-1 (Version None)
Quarter: 2012Q1

REPORT INFORMATION
  Report Type: 
  Country: None (occurrence: None)
  Receive Date: 20120210
  Receipt Date: 20120126
  Transmission Date: 20120608
  Serious: Yes (Death, Other)
  Sender: FDA-Public Use
  Company Number: EU-2011-10258

PATIENT
  Age: 65 Year
  Sex: Male

DRUGS (1)
  1. SAMSCA [Suspect]
     Dosage: 15 MG MILLIGRAM(S), SINGLE, ORAL, 30 MG MILLIGRAM(S),  ORAL
     Route: 048

REACTIONS (6)
  - BRAIN OEDEMA [None]
  - RAPID CORRECTION OF HYPONATRAEMIA [None]
  - DEMYELINATION [None]
  - CONVULSION [None]
  - BRAIN STEM SYNDROME [None]
  - BLOOD SODIUM INCREASED [None]
